FAERS Safety Report 7271150-X (Version None)
Quarter: 2011Q1

REPORT INFORMATION
  Report Type: 
  Country: None (occurrence: None)
  Receive Date: 20110202
  Receipt Date: 20110121
  Transmission Date: 20110831
  Serious: Yes (Death, Congenital Anomaly)
  Sender: FDA-Public Use
  Company Number: KR-MERCK-1101KOR00042B1

PATIENT
  Age: 0 Day

DRUGS (1)
  1. PROPECIA [Suspect]
     Route: 064

REACTIONS (3)
  - DEATH [None]
  - FOETAL CHROMOSOME ABNORMALITY [None]
  - DRUG EXPOSURE DURING PREGNANCY [None]
